FAERS Safety Report 5730330-2 (Version None)
Quarter: 2008Q2

REPORT INFORMATION
  Report Type: 
  Country: None (occurrence: None)
  Receive Date: 20080505
  Receipt Date: 20080505
  Transmission Date: 20081010
  Serious: Yes (Other)
  Sender: FDA-Public Use
  Company Number: None

PATIENT
  Age: 55 Year
  Sex: Female
  Weight: 63.5036 kg

DRUGS (1)
  1. MIRAPEX [Suspect]
     Indication: PATHOLOGICAL GAMBLING
     Dosage: 25 MG ONCE A DAY PO
     Route: 048
     Dates: start: 20000101, end: 20080504

REACTIONS (1)
  - PATHOLOGICAL GAMBLING [None]
